FAERS Safety Report 5244849-4 (Version None)
Quarter: 2007Q1

REPORT INFORMATION
  Report Type: 
  Country: None (occurrence: None)
  Receive Date: 20070216
  Receipt Date: 20070209
  Transmission Date: 20070707
  Serious: Yes (Other)
  Sender: FDA-Public Use
  Company Number: CAP07000014

PATIENT
  Age: 74 Year
  Sex: Female
  Weight: 49.9 kg

DRUGS (5)
  1. ACTONEL [Suspect]
     Indication: OSTEOPOROSIS
     Dosage: 35 MG ONCE WEEKLY, ORAL, 35 MG ONCE WEEKLY, ORAL
     Route: 048
     Dates: start: 20020401, end: 20050201
  2. ACTONEL [Suspect]
     Indication: OSTEOPOROSIS
     Dosage: 35 MG ONCE WEEKLY, ORAL, 35 MG ONCE WEEKLY, ORAL
     Route: 048
     Dates: start: 20070110
  3. DIDROCAL (ETIDRONATE DISODIUM, CALCIUM CARBONATE) [Suspect]
     Indication: OSTEOPOROSIS
     Dosage: 1 TABLET ONCE DAILY; ORAL
     Route: 048
     Dates: start: 20050531, end: 20060101
  4. TRAVATAN [Concomitant]
  5. AMOXICILLIN [Concomitant]

REACTIONS (1)
  - LEUKAEMIA [None]
